FAERS Safety Report 21269496 (Version 3)
Quarter: 2022Q4

REPORT INFORMATION
  Report Type: Other
  Country: UM (occurrence: None)
  Receive Date: 20220830
  Receipt Date: 20221010
  Transmission Date: 20230113
  Serious: Yes (Death, Hospitalization)
  Sender: FDA-Public Use
  Company Number: UM-ROCHE-3168868

PATIENT
  Age: 25 Year
  Sex: Female

DRUGS (1)
  1. EVRYSDI [Suspect]
     Active Substance: RISDIPLAM
     Indication: Spinal muscular atrophy
     Dosage: 0.75MG/ML 80ML
     Route: 048
     Dates: start: 20210108, end: 20211224

REACTIONS (4)
  - Acute hepatic failure [Fatal]
  - COVID-19 [Fatal]
  - Respiratory failure [Fatal]
  - Therapeutic product effect decreased [Unknown]

NARRATIVE: CASE EVENT DATE: 20220822
